FAERS Safety Report 6505376-7 (Version None)
Quarter: 2009Q4

REPORT INFORMATION
  Report Type: 
  Country: None (occurrence: None)
  Receive Date: 20091218
  Receipt Date: 20091214
  Transmission Date: 20100525
  Serious: Yes (Other)
  Sender: FDA-Public Use
  Company Number: US-ROCHE-672134

PATIENT
  Sex: Female
  Weight: 75.8 kg

DRUGS (3)
  1. BONIVA [Suspect]
     Indication: OSTEOPOROSIS
     Route: 048
     Dates: start: 20090901, end: 20091201
  2. RITUXAN [Suspect]
     Indication: CENTRAL NERVOUS SYSTEM LYMPHOMA
     Route: 042
  3. GABAPENTIN [Suspect]
     Route: 065

REACTIONS (7)
  - CONVULSION [None]
  - DIZZINESS [None]
  - DYSLEXIA [None]
  - MENTAL IMPAIRMENT [None]
  - SEDATION [None]
  - SLEEP DISORDER [None]
  - WEIGHT INCREASED [None]
